FAERS Safety Report 7726624-1 (Version None)
Quarter: 2011Q3

REPORT INFORMATION
  Report Type: 
  Country: None (occurrence: None)
  Receive Date: 20110902
  Receipt Date: 20110825
  Transmission Date: 20111222
  Serious: Yes (Congenital Anomaly)
  Sender: FDA-Public Use
  Company Number: US-VIROPHARMA INCORPORATED-20110825CINRY2252

PATIENT
  Sex: 0

DRUGS (2)
  1. CINRYZE [Suspect]
     Route: 064
     Dates: start: 20100909
  2. CINRYZE [Suspect]
     Indication: HEREDITARY ANGIOEDEMA
     Route: 064
     Dates: start: 20100629, end: 20100902

REACTIONS (2)
  - CONGENITAL ANOMALY [None]
  - MATERNAL EXPOSURE DURING PREGNANCY [None]
